FAERS Safety Report 12646941 (Version 1)
Quarter: 2016Q3

REPORT INFORMATION
  Report Type: Spontaneous
  Country: US (occurrence: US)
  Receive Date: 20160812
  Receipt Date: 20160812
  Transmission Date: 20161109
  Serious: No
  Sender: FDA-Public Use
  Company Number: US-ELI_LILLY_AND_COMPANY-US201608000387

PATIENT
  Age: 65 Year
  Sex: Male

DRUGS (6)
  1. CIALIS [Suspect]
     Active Substance: TADALAFIL
     Indication: ERECTILE DYSFUNCTION
     Dosage: 2.5 MG, UNKNOWN
     Route: 048
     Dates: start: 201607
  2. FINASTERIDE. [Concomitant]
     Active Substance: FINASTERIDE
  3. LISINOPRIL. [Concomitant]
     Active Substance: LISINOPRIL
     Dosage: 20 UNK, UNK
  4. CIALIS [Suspect]
     Active Substance: TADALAFIL
     Indication: BENIGN PROSTATIC HYPERPLASIA
  5. LIPITOR [Concomitant]
     Active Substance: ATORVASTATIN CALCIUM
  6. BABY ASPIRIN [Concomitant]
     Active Substance: ASPIRIN

REACTIONS (2)
  - Pain in extremity [Not Recovered/Not Resolved]
  - Poor quality sleep [Unknown]

NARRATIVE: CASE EVENT DATE: 201607
